FAERS Safety Report 9158355 (Version 1)
Quarter: 2013Q1

REPORT INFORMATION
  Report Type: Report from Study
  Country: ES (occurrence: ES)
  Receive Date: 20130312
  Receipt Date: 20130312
  Transmission Date: 20140127
  Serious: Yes (Other)
  Sender: FDA-Public Use
  Company Number: ES-UCBSA-080150

PATIENT
  Sex: 0

DRUGS (1)
  1. OMEPRAZOLE [Suspect]

REACTIONS (1)
  - Colitis microscopic [Unknown]
